FAERS Safety Report 13512461 (Version 1)
Quarter: 2017Q2

REPORT INFORMATION
  Report Type: Spontaneous
  Country: US (occurrence: US)
  Receive Date: 20170504
  Receipt Date: 20170504
  Transmission Date: 20170830
  Serious: No
  Sender: FDA-Public Use
  Company Number: US-FRESENIUS KABI-FK201703466

PATIENT
  Age: 31 Year
  Sex: Male

DRUGS (4)
  1. SMOFLIPID [Suspect]
     Active Substance: FISH OIL\MEDIUM-CHAIN TRIGLYCERIDES\OLIVE OIL\SOYBEAN OIL
     Indication: FATTY ACID DEFICIENCY
     Route: 041
     Dates: start: 20161020, end: 20170213
  2. SMOFLIPID [Suspect]
     Active Substance: FISH OIL\MEDIUM-CHAIN TRIGLYCERIDES\OLIVE OIL\SOYBEAN OIL
     Route: 041
     Dates: start: 20170213, end: 201703
  3. SOY LIPIDS [Concomitant]
     Indication: FATTY ACID DEFICIENCY
     Route: 065
     Dates: end: 20161020
  4. JUVEN [Concomitant]
     Active Substance: .BETA.-HYDROXYISOVALERIC ACID\ARGININE\GLUTAMINE
     Indication: WOUND
     Route: 065
     Dates: end: 201703

REACTIONS (1)
  - Priapism [Recovered/Resolved]

NARRATIVE: CASE EVENT DATE: 201702
